FAERS Safety Report 8674443 (Version 3)
Quarter: 2012Q4

REPORT INFORMATION
  Report Type: 
  Country: US (occurrence: US)
  Receive Date: 20120720
  Receipt Date: 20121213
  Transmission Date: 20130627
  Serious: Yes (Hospitalization)
  Sender: FDA-Public Use
  Company Number: US-AMGEN-USASP2012044456

PATIENT
  Age: 64 Year
  Sex: Female

DRUGS (18)
  1. ENBREL [Suspect]
     Indication: PSORIATIC ARTHROPATHY
     Dosage: 50 mg, 2 times/wk
     Dates: start: 20010101
  2. LASIX                              /00032601/ [Concomitant]
     Dosage: 1 tablet by oral route every day
     Route: 048
  3. LANTUS [Concomitant]
     Dosage: inject by subcutaneous route as per insulin protocol
     Route: 058
  4. FLUCONAZOLE [Concomitant]
     Dosage: 10 ml every day
     Route: 048
  5. ASPIRIN [Concomitant]
     Dosage: 325 mg, 1 tablet every day
     Route: 048
  6. LISINOPRIL [Concomitant]
     Dosage: 10 mg, 1 tablet every day
     Route: 048
  7. VESICARE [Concomitant]
     Dosage: 5 mg, 1 tablet every day
     Route: 048
  8. HUMALOG [Concomitant]
     Dosage: inject by subcutaneous route as per insulin sliding scale protocol
     Route: 058
  9. COREG [Concomitant]
     Dosage: 6.25 mg, bid Take 1 tablet 2 times every day with food
     Route: 048
  10. LIDOCAINE HCL HYDROCORTISONE ACETATE [Concomitant]
     Dosage: Apply by topical route 2 times every day to affected area
     Route: 061
  11. RANITIDINE [Concomitant]
     Dosage: 300 mg, take 1 tablet every day at bedtime
     Route: 048
  12. CRESTOR [Concomitant]
     Dosage: 10 mg, 1 tablet every day
     Route: 048
  13. LOVAZA [Concomitant]
     Dosage: 2 capsule, 2times every day
     Route: 048
  14. KLOR-CON [Concomitant]
     Dosage: 10 mEq, bid 2 tablets (20 mEq), 2times every day with food
     Route: 048
  15. NORVASC [Concomitant]
     Dosage: 5 mg, 1 tablet every day
     Route: 048
  16. CYMBALTA [Concomitant]
     Dosage: 60 mg, qd 1 capsule every day
  17. IMURAN                             /00001501/ [Concomitant]
     Dosage: 50 mg, qd, 2 tablets (100mg) every day
     Route: 048
  18. PREDNISONE [Concomitant]
     Dosage: 5 mg, bid, 1 tablet 2times every day

REACTIONS (26)
  - Vascular graft [Recovered/Resolved]
  - Oral disorder [Recovered/Resolved]
  - Oral mucosal blistering [Recovered/Resolved]
  - Oral pain [Recovered/Resolved]
  - Toe amputation [Recovered/Resolved]
  - Pneumonia [Recovered/Resolved]
  - Staphylococcal infection [Recovered/Resolved]
  - Arthralgia [Recovered/Resolved]
  - Joint swelling [Recovered/Resolved]
  - Weight decreased [Recovered/Resolved]
  - Pain [Recovered/Resolved]
  - Back pain [Recovered/Resolved]
  - Pain in extremity [Recovered/Resolved]
  - Mobility decreased [Recovered/Resolved]
  - Alopecia [Recovered/Resolved]
  - Oedema peripheral [Recovered/Resolved]
  - Walking aid user [Recovered/Resolved]
  - Arthritis [Recovered/Resolved]
  - Abasia [Recovered/Resolved]
  - Dry mouth [Unknown]
  - Dry eye [Unknown]
  - Lacrimation increased [Unknown]
  - Musculoskeletal pain [Unknown]
  - Musculoskeletal stiffness [Unknown]
  - Injection site pain [Recovered/Resolved]
  - Injection site discomfort [Recovered/Resolved]
